FAERS Safety Report 8585778-8 (Version None)
Quarter: 2012Q3

REPORT INFORMATION
  Report Type: 
  Country: None (occurrence: None)
  Receive Date: 20120802
  Receipt Date: 20120802
  Transmission Date: 20120928
  Serious: Yes (Hospitalization)
  Sender: FDA-Public Use
  Company Number: None

PATIENT
  Age: 32 Year
  Sex: Male
  Weight: 72.5755 kg

DRUGS (1)
  1. ZYBAN [Suspect]
     Dosage: 150MG BID PO
     Route: 048

REACTIONS (3)
  - ARTHRALGIA [None]
  - RASH [None]
  - PAIN [None]
